FAERS Safety Report 14361024 (Version 2)
Quarter: 2020Q2

REPORT INFORMATION
  Report Type: Report from Study
  Country: US (occurrence: US)
  Receive Date: 20180107
  Receipt Date: 20200505
  Transmission Date: 20200713
  Serious: No
  Sender: FDA-Public Use
  Company Number: US-BRISTOL-MYERS SQUIBB COMPANY-BMS-2018-000180

PATIENT
  Sex: Male
  Weight: 81.19 kg

DRUGS (1)
  1. ABATACEPT [Suspect]
     Active Substance: ABATACEPT
     Indication: RHEUMATOID ARTHRITIS
     Dosage: 125 MILLIGRAM, QWK
     Route: 058
     Dates: start: 20171001

REACTIONS (4)
  - Tooth disorder [Unknown]
  - Oropharyngeal pain [Unknown]
  - COVID-19 [Unknown]
  - Sinusitis [Unknown]
